FAERS Safety Report 13033240 (Version 2)
Quarter: 2017Q1

REPORT INFORMATION
  Report Type: Spontaneous
  Country: US (occurrence: US)
  Receive Date: 20161216
  Receipt Date: 20170113
  Transmission Date: 20170428
  Serious: Yes (Other)
  Sender: FDA-Public Use
  Company Number: US-ROCHE-1867430

PATIENT
  Sex: Male

DRUGS (2)
  1. ERIVEDGE [Suspect]
     Active Substance: VISMODEGIB
     Indication: BASAL CELL CARCINOMA
     Route: 048
     Dates: start: 20160325
  2. ERIVEDGE [Suspect]
     Active Substance: VISMODEGIB
     Route: 048
     Dates: start: 20160329

REACTIONS (9)
  - Abdominal distension [Unknown]
  - Frequent bowel movements [Unknown]
  - Diarrhoea [Unknown]
  - Cerebrospinal fluid leakage [Unknown]
  - Abdominal discomfort [Unknown]
  - Malaise [Unknown]
  - Poor quality sleep [Unknown]
  - Anxiety [Unknown]
  - Ageusia [Unknown]
